FAERS Safety Report 7593322-7 (Version None)
Quarter: 2011Q3

REPORT INFORMATION
  Report Type: 
  Country: None (occurrence: None)
  Receive Date: 20110706
  Receipt Date: 20110628
  Transmission Date: 20111222
  Serious: Yes (Death, Hospitalization, Other)
  Sender: FDA-Public Use
  Company Number: US-CELGENEUS-163-21880-11063812

PATIENT
  Age: 64 Year
  Sex: Male

DRUGS (6)
  1. DIGOXIN [Concomitant]
     Route: 065
  2. METOPROLOL TARTRATE [Concomitant]
     Route: 065
  3. REVLIMID [Suspect]
     Dosage: 50 MILLIGRAM
     Route: 048
     Dates: start: 20100727, end: 20100814
  4. SIMVASTATIN [Concomitant]
     Route: 065
  5. OMEPRAZOLE [Concomitant]
     Route: 065
  6. LORATADINE AND PSEUDOEPHEDRINE SULFATE [Concomitant]
     Route: 065

REACTIONS (8)
  - PLATELET COUNT DECREASED [None]
  - PYREXIA [None]
  - ATRIAL FIBRILLATION [None]
  - DYSPNOEA [None]
  - DEATH [None]
  - RESPIRATORY DISTRESS [None]
  - HAEMOGLOBIN DECREASED [None]
  - NEUTROPENIA [None]
